FAERS Safety Report 5891377-9 (Version None)
Quarter: 2008Q3

REPORT INFORMATION
  Report Type: 
  Country: None (occurrence: None)
  Receive Date: 20080918
  Receipt Date: 20080918
  Transmission Date: 20090109
  Serious: No
  Sender: FDA-Public Use
  Company Number: None

PATIENT
  Age: 43 Year
  Sex: Female

DRUGS (1)
  1. NUVARING [Suspect]

REACTIONS (4)
  - AMENORRHOEA [None]
  - CONTRACEPTIVE DEVICE COMPLICATION [None]
  - MUSCLE SPASMS [None]
  - PAIN [None]
